FAERS Safety Report 8533934-7 (Version None)
Quarter: 2012Q3

REPORT INFORMATION
  Report Type: 
  Country: None (occurrence: None)
  Receive Date: 20120724
  Receipt Date: 20120718
  Transmission Date: 20120928
  Serious: Yes (Other)
  Sender: FDA-Public Use
  Company Number: US-ROCHE-1089623

PATIENT
  Sex: Female

DRUGS (3)
  1. FOSAMAX [Suspect]
     Indication: OSTEOPOROSIS
  2. BONIVA [Suspect]
     Indication: OSTEOPOROSIS
  3. ALENDRONATE SODIUM [Suspect]
     Indication: OSTEOPOROSIS
     Route: 065

REACTIONS (5)
  - STRESS FRACTURE [None]
  - LOW TURNOVER OSTEOPATHY [None]
  - ANXIETY [None]
  - FEMUR FRACTURE [None]
  - EMOTIONAL DISTRESS [None]
